FAERS Safety Report 9750060 (Version 1)
Quarter: 2013Q4

REPORT INFORMATION
  Report Type: Spontaneous
  Country: DE (occurrence: DE)
  Receive Date: 20131212
  Receipt Date: 20131212
  Transmission Date: 20140711
  Serious: Yes (Other)
  Sender: FDA-Public Use
  Company Number: DE-GILEAD-DE-CVT-090763

PATIENT
  Age: 77 Year
  Sex: Male

DRUGS (10)
  1. RANEXA [Suspect]
     Indication: ANGINA PECTORIS
     Route: 048
     Dates: start: 20090721, end: 20090922
  2. VALSARTAN [Concomitant]
  3. CLOPIDOGREL                        /01220701/ [Concomitant]
  4. TORASEMIDE [Concomitant]
  5. ACETYLSALICYLIC ACID [Concomitant]
  6. BISOPROLOL                         /00802601/ [Concomitant]
  7. SIMVASTATIN [Concomitant]
  8. ALLOPURINOL [Concomitant]
  9. PENTAERYTHRITOL TETRANITRATE [Concomitant]
  10. EPOETIN NOS [Concomitant]

REACTIONS (2)
  - Renal failure [Recovered/Resolved]
  - Blood creatinine increased [Recovered/Resolved]
